FAERS Safety Report 14008985 (Version 2)
Quarter: 2017Q4

REPORT INFORMATION
  Report Type: Spontaneous
  Country: US (occurrence: US)
  Receive Date: 20170925
  Receipt Date: 20171112
  Transmission Date: 20180321
  Serious: No
  Sender: FDA-Public Use
  Company Number: US-ASTRAZENECA-2017SE95995

PATIENT
  Age: 73 Year
  Sex: Male

DRUGS (2)
  1. CASODEX [Suspect]
     Active Substance: BICALUTAMIDE
     Route: 048
  2. XTANDI [Suspect]
     Active Substance: ENZALUTAMIDE
     Indication: PROSTATE CANCER
     Route: 048
     Dates: start: 20170805

REACTIONS (4)
  - Musculoskeletal stiffness [Recovered/Resolved]
  - Pain in extremity [Recovered/Resolved]
  - Vision blurred [Recovered/Resolved]
  - Hypersensitivity [Unknown]
